FAERS Safety Report 20827413 (Version 3)
Quarter: 2022Q3

REPORT INFORMATION
  Report Type: Spontaneous
  Country: US (occurrence: US)
  Receive Date: 20220513
  Receipt Date: 20220914
  Transmission Date: 20221027
  Serious: Yes (Other)
  Sender: FDA-Public Use
  Company Number: US-GLENMARK PHARMACEUTICALS-2022GMK072227

PATIENT

DRUGS (3)
  1. ZONISAMIDE [Suspect]
     Active Substance: ZONISAMIDE
     Indication: Migraine prophylaxis
     Dosage: 125 MILLIGRAM, HS (5 CAPSULES AT BEDTIME)
     Route: 048
     Dates: start: 202111, end: 20220428
  2. SYNTHROID [Concomitant]
     Active Substance: LEVOTHYROXINE SODIUM
     Indication: Hypothyroidism
     Dosage: 1 DOSAGE FORM, AM
     Route: 048
  3. NADOLOL [Concomitant]
     Active Substance: NADOLOL
     Indication: Hypertension
     Dosage: 10 MILLIGRAM, OD (STARTED 10 YEAR BEFORE THIS REPORT)
     Route: 048

REACTIONS (9)
  - Migraine [Recovering/Resolving]
  - Illness [Unknown]
  - Asthenopia [Not Recovered/Not Resolved]
  - Cerebrovascular accident [Unknown]
  - Headache [Recovering/Resolving]
  - Visual impairment [Recovering/Resolving]
  - Fatigue [Recovering/Resolving]
  - Eye pain [Not Recovered/Not Resolved]
  - Product use in unapproved indication [Unknown]
